FAERS Safety Report 16416845 (Version 1)
Quarter: 2019Q2

REPORT INFORMATION
  Report Type: Spontaneous
  Country: ES (occurrence: ES)
  Receive Date: 20190611
  Receipt Date: 20190611
  Transmission Date: 20190711
  Serious: Yes (Death, Hospitalization)
  Sender: FDA-Public Use
  Company Number: ES-TEVA-2019-ES-1059916

PATIENT
  Age: 92 Year
  Sex: Male

DRUGS (2)
  1. CIPROFLOXACINO (2049A) [Suspect]
     Active Substance: CIPROFLOXACIN
     Indication: INFECTED SKIN ULCER
     Dosage: 750 MG DIA
     Route: 048
     Dates: start: 20181211, end: 20181220
  2. SINTROM [Interacting]
     Active Substance: ACENOCOUMAROL
     Indication: ATRIAL FIBRILLATION
     Dosage: SP
     Route: 048
     Dates: start: 20150101, end: 20181220

REACTIONS (2)
  - Drug interaction [Unknown]
  - Subdural haematoma [Fatal]

NARRATIVE: CASE EVENT DATE: 20181220
